FAERS Safety Report 8342953-5 (Version None)
Quarter: 2012Q2

REPORT INFORMATION
  Report Type: 
  Country: None (occurrence: None)
  Receive Date: 20120508
  Receipt Date: 20120501
  Transmission Date: 20120825
  Serious: Yes (Hospitalization)
  Sender: FDA-Public Use
  Company Number: CA-AMGEN-CANCT2012007765

PATIENT
  Age: 29 Year
  Sex: Female

DRUGS (5)
  1. CALCIUM [Concomitant]
     Dosage: 500 MG, UNK
     Route: 048
  2. VITAMIN B COMPLEX CAP [Concomitant]
     Route: 048
  3. TRAMADOL HYDROCHLORIDE [Concomitant]
  4. ETANERCEPT [Suspect]
     Indication: PSORIASIS
     Dosage: 50 MG, 2 TIMES/WK
     Route: 058
     Dates: start: 20111026
  5. VITAMIN D [Concomitant]
     Dosage: 1000 IU, UNK
     Route: 048

REACTIONS (1)
  - CROHN'S DISEASE [None]
